FAERS Safety Report 17927013 (Version 6)
Quarter: 2022Q1

REPORT INFORMATION
  Report Type: Spontaneous
  Country: US (occurrence: US)
  Receive Date: 20200623
  Receipt Date: 20220309
  Transmission Date: 20220424
  Serious: Yes (Hospitalization, Other)
  Sender: FDA-Public Use
  Company Number: US-GLOBAL BLOOD THERAPEUTICS INC-US-GBT-20-00382

PATIENT
  Sex: Female

DRUGS (30)
  1. OXBRYTA [Suspect]
     Active Substance: VOXELOTOR
     Indication: Sickle cell disease
     Route: 048
     Dates: start: 20200207, end: 2020
  2. OXBRYTA [Suspect]
     Active Substance: VOXELOTOR
     Indication: Haemoglobin C disease
     Route: 048
     Dates: start: 2020, end: 2021
  3. OXBRYTA [Suspect]
     Active Substance: VOXELOTOR
     Route: 048
     Dates: start: 2021
  4. HYDROXYUREA [Suspect]
     Active Substance: HYDROXYUREA
     Indication: Sickle cell disease
     Route: 048
  5. JADENU [Concomitant]
     Active Substance: DEFERASIROX
     Indication: Haemochromatosis
     Dosage: NOT PROVIDED
     Dates: start: 2020
  6. FOLIC ACID [Concomitant]
     Active Substance: FOLIC ACID
     Indication: Product used for unknown indication
     Route: 048
  7. ACYCLOVIR [Concomitant]
     Active Substance: ACYCLOVIR
     Indication: Product used for unknown indication
  8. FIORICET [Concomitant]
     Active Substance: ACETAMINOPHEN\BUTALBITAL\CAFFEINE
     Indication: Product used for unknown indication
     Dosage: NOT PROVIDED
  9. TYLENOL ARTHRITIS PAIN [Concomitant]
     Active Substance: ACETAMINOPHEN
     Indication: Product used for unknown indication
  10. PERCOCET [Concomitant]
     Active Substance: ACETAMINOPHEN\OXYCODONE HYDROCHLORIDE
     Indication: Pain
     Dosage: 5-125 MG, 1 TABLET
     Route: 048
  11. INTERMITTENT PRBC TRANSFUSIONS [Concomitant]
     Indication: Sickle cell disease
  12. TYLENOL [Concomitant]
     Active Substance: ACETAMINOPHEN
     Indication: Pain
     Route: 048
  13. ALBUTEROL SULFATE [Concomitant]
     Active Substance: ALBUTEROL SULFATE
     Indication: Wheezing
     Dosage: 1 PUFF
  14. CIPROFLOXACIN [Concomitant]
     Active Substance: CIPROFLOXACIN
     Indication: Product used for unknown indication
     Route: 048
  15. DICYCLOMINE [Concomitant]
     Active Substance: DICYCLOMINE HYDROCHLORIDE
     Indication: Product used for unknown indication
     Route: 048
  16. SENOKOT [Concomitant]
     Active Substance: SENNOSIDES
     Indication: Constipation
     Route: 048
  17. FLONASE [Concomitant]
     Active Substance: FLUTICASONE PROPIONATE
     Indication: Hypersensitivity
     Dosage: 2 SPRAYS
     Route: 045
  18. LEVOTHYROXINE [Concomitant]
     Active Substance: LEVOTHYROXINE
     Indication: Product used for unknown indication
  19. CLARITIN [Concomitant]
     Active Substance: LORATADINE
     Indication: Hypersensitivity
     Route: 048
  20. MAGNESIUM CITRATE [Concomitant]
     Active Substance: MAGNESIUM CITRATE
     Indication: Constipation
     Dosage: NOT PROVIDED
     Route: 048
  21. MIRALAX [Concomitant]
     Active Substance: POLYETHYLENE GLYCOL 3350
     Indication: Constipation
     Route: 048
  22. TRIAMCINOLONE [Concomitant]
     Active Substance: TRIAMCINOLONE
     Indication: Rash
     Dosage: NOT PROVIDED
     Route: 061
  23. ELIQUIS [Concomitant]
     Active Substance: APIXABAN
     Indication: Product used for unknown indication
     Dosage: 2 TABLET, TWICE PER DAY FOR FOUR DAYS, THEN 1 TABLET, TWICE PER DAY FOR 30 DAYS
     Route: 048
  24. SYNVISC-ONE [Concomitant]
     Active Substance: HYLAN G-F 20
     Indication: Product used for unknown indication
     Dosage: 48 MG/ 6 ML
     Route: 014
  25. EMLA [Concomitant]
     Active Substance: LIDOCAINE\PRILOCAINE
     Indication: Product used for unknown indication
     Dosage: 1 APPLICATION
     Route: 061
  26. NALOXONE [Concomitant]
     Active Substance: NALOXONE
     Indication: Product used for unknown indication
     Dosage: 1 SPRAY, NOSTRIL
     Route: 045
  27. ZOFRAN ODT [Concomitant]
     Active Substance: ONDANSETRON HYDROCHLORIDE
     Indication: Nausea
     Route: 048
  28. ZOFRAN ODT [Concomitant]
     Active Substance: ONDANSETRON HYDROCHLORIDE
     Indication: Vomiting
  29. OXYGEN [Concomitant]
     Active Substance: OXYGEN
     Indication: Dyspnoea exertional
     Dosage: 3 L/MIN
  30. PROTONIX [Concomitant]
     Active Substance: PANTOPRAZOLE SODIUM
     Indication: Product used for unknown indication
     Route: 048

REACTIONS (21)
  - Sickle cell anaemia with crisis [Unknown]
  - Embolism venous [Unknown]
  - Renal disorder [Recovering/Resolving]
  - Coronavirus pneumonia [Recovered/Resolved]
  - Shoulder arthroplasty [Recovered/Resolved]
  - Retinal detachment [Recovered/Resolved]
  - Migraine [Recovering/Resolving]
  - Spinal nerve stimulator implantation [Recovering/Resolving]
  - Spinal nerve stimulator removal [Recovering/Resolving]
  - Pain in extremity [Recovering/Resolving]
  - Pain [Recovering/Resolving]
  - Colitis [Recovered/Resolved]
  - Dizziness [Recovered/Resolved]
  - Tinnitus [Recovered/Resolved]
  - Haemochromatosis [Recovered/Resolved]
  - Fatigue [Recovered/Resolved]
  - Headache [Recovered/Resolved]
  - Diarrhoea [Recovered/Resolved]
  - Ill-defined disorder [Recovering/Resolving]
  - Therapy interrupted [Unknown]
  - Insurance issue [Unknown]

NARRATIVE: CASE EVENT DATE: 20200101
